FAERS Safety Report 6970410-7 (Version None)
Quarter: 2010Q3

REPORT INFORMATION
  Report Type: 
  Country: None (occurrence: None)
  Receive Date: 20100908
  Receipt Date: 20100830
  Transmission Date: 20110219
  Serious: Yes (Hospitalization)
  Sender: FDA-Public Use
  Company Number: US-ASTRAZENECA-2010SE40749

PATIENT
  Age: 74 Year
  Sex: Male

DRUGS (6)
  1. CRESTOR [Suspect]
     Route: 048
     Dates: start: 20100220, end: 20100801
  2. ASPIRIN [Concomitant]
  3. LANTUS [Concomitant]
     Dosage: 20 UNITS AT NIGHT
  4. BENECAR [Concomitant]
     Dosage: UNKNOWN DOSE DAILY
  5. FLOMAX [Concomitant]
     Dosage: UNKNOWN DOSE DAILY
  6. GLIPIZIDE [Concomitant]

REACTIONS (3)
  - BLOOD CREATINE PHOSPHOKINASE INCREASED [None]
  - FIBRIN D DIMER INCREASED [None]
  - RHABDOMYOLYSIS [None]
